FAERS Safety Report 19506208 (Version 1)
Quarter: 2021Q3

REPORT INFORMATION
  Report Type: Spontaneous
  Country: US (occurrence: US)
  Receive Date: 20210708
  Receipt Date: 20210708
  Transmission Date: 20211014
  Serious: Yes (Hospitalization, Other)
  Sender: FDA-Public Use
  Company Number: US-EMCURE PHARMACEUTICALS LTD-2021-EPL-002243

PATIENT
  Age: 62 Year
  Sex: Female

DRUGS (3)
  1. SULFAMETHOXAZOLE, TRIMETHOPRIM [Suspect]
     Active Substance: SULFAMETHOXAZOLE\TRIMETHOPRIM
     Indication: URINARY TRACT INFECTION
     Dosage: UNK
  2. SEROQUEL [Concomitant]
     Active Substance: QUETIAPINE FUMARATE
     Indication: BIPOLAR DISORDER
  3. LITHIUM. [Concomitant]
     Active Substance: LITHIUM
     Indication: MANIA

REACTIONS (3)
  - Pancytopenia [Recovering/Resolving]
  - Hypotension [Unknown]
  - Abdominal pain [Unknown]
